FAERS Safety Report 18658591 (Version 2)
Quarter: 2021Q1

REPORT INFORMATION
  Report Type: Spontaneous
  Country: US (occurrence: US)
  Receive Date: 20201223
  Receipt Date: 20210126
  Transmission Date: 20210419
  Serious: Yes (Hospitalization, Other)
  Sender: FDA-Public Use
  Company Number: US-TEVA-2020-US-1860964

PATIENT
  Age: 6 Decade
  Sex: Female

DRUGS (10)
  1. TIZANIDINE. [Suspect]
     Active Substance: TIZANIDINE
     Indication: STIFF PERSON SYNDROME
     Dosage: 18 MILLIGRAM DAILY;
     Route: 048
  2. BACLOFEN. [Suspect]
     Active Substance: BACLOFEN
     Indication: STIFF PERSON SYNDROME
     Dosage: 100 MICROGRAM DAILY;
     Route: 037
  3. IMMUNE GLOBULIN (IMMUNOGLOBULINS NOS) [Suspect]
     Active Substance: IMMUNE GLOBULIN NOS
     Indication: STIFF PERSON SYNDROME
     Route: 042
  4. PREGABALIN. [Concomitant]
     Active Substance: PREGABALIN
     Indication: NEURALGIA
     Route: 065
  5. BACLOFEN. [Suspect]
     Active Substance: BACLOFEN
     Indication: STIFF PERSON SYNDROME
     Dosage: 40 MILLIGRAM DAILY;
     Route: 048
  6. BACLOFEN. [Suspect]
     Active Substance: BACLOFEN
     Dosage: 475.1 MICROGRAM DAILY;
     Route: 037
  7. GABAPENTIN. [Concomitant]
     Active Substance: GABAPENTIN
     Indication: NEURALGIA
     Route: 065
  8. METHYLPREDNISOLONE. [Suspect]
     Active Substance: METHYLPREDNISOLONE
     Indication: STIFF PERSON SYNDROME
     Route: 042
  9. DIAZEPAM. [Suspect]
     Active Substance: DIAZEPAM
     Indication: STIFF PERSON SYNDROME
     Dosage: 20 MILLIGRAM DAILY;
     Route: 048
  10. PREDNISONE. [Suspect]
     Active Substance: PREDNISONE
     Indication: STIFF PERSON SYNDROME
     Route: 048

REACTIONS (5)
  - Epistaxis [Unknown]
  - Fatigue [Unknown]
  - Scoliosis [Recovering/Resolving]
  - Headache [Unknown]
  - Drug ineffective [Unknown]
